FAERS Safety Report 9019740 (Version 1)
Quarter: 2013Q1

REPORT INFORMATION
  Report Type: Spontaneous
  Country: US (occurrence: US)
  Receive Date: 20130118
  Receipt Date: 20130118
  Transmission Date: 20140127
  Serious: No
  Sender: FDA-Public Use
  Company Number: US-SANOFI-AVENTIS-2012SA006239

PATIENT
  Sex: Male

DRUGS (2)
  1. LASIX [Suspect]
     Indication: CARDIAC FAILURE CONGESTIVE
     Route: 048
     Dates: start: 1990
  2. COLCHICINE [Concomitant]

REACTIONS (1)
  - Renal disorder [Not Recovered/Not Resolved]
